FAERS Safety Report 10266613 (Version 1)
Quarter: 2014Q2

REPORT INFORMATION
  Report Type: Spontaneous
  Country: US (occurrence: None)
  Receive Date: 20140625
  Receipt Date: 20140625
  Transmission Date: 20141212
  Serious: Yes (Other)
  Sender: FDA-Public Use
  Company Number: None

PATIENT
  Age: 38 Year
  Sex: Female
  Weight: 54.43 kg

DRUGS (1)
  1. MIRENA [Suspect]

REACTIONS (7)
  - Device dislocation [None]
  - Embedded device [None]
  - Ectopic pregnancy [None]
  - Vaginal haemorrhage [None]
  - Muscle spasms [None]
  - Pregnancy with contraceptive device [None]
  - Exposure during pregnancy [None]
